FAERS Safety Report 6634555-3 (Version None)
Quarter: 2010Q1

REPORT INFORMATION
  Report Type: 
  Country: None (occurrence: None)
  Receive Date: 20100225
  Receipt Date: 20090224
  Transmission Date: 20100710
  Serious: Yes (Other)
  Sender: FDA-Public Use
  Company Number: 591568

PATIENT
  Age: 15 Year
  Sex: Male
  Weight: 72.6 kg

DRUGS (2)
  1. ACCUTANE [Suspect]
     Indication: ACNE
     Dosage: 60 MG DAILY
     Dates: start: 20051121, end: 20051221
  2. CLARAVIS [Suspect]
     Indication: ACNE
     Dosage: 40 MG DAILY
     Dates: start: 20051001, end: 20060301

REACTIONS (8)
  - ARTHRALGIA [None]
  - BACK PAIN [None]
  - COLITIS ULCERATIVE [None]
  - CROHN'S DISEASE [None]
  - INFLAMMATORY BOWEL DISEASE [None]
  - LIP DRY [None]
  - NECK PAIN [None]
  - XEROSIS [None]
